FAERS Safety Report 5232148-6 (Version None)
Quarter: 2007Q1

REPORT INFORMATION
  Report Type: 
  Country: None (occurrence: None)
  Receive Date: 20061201
  Receipt Date: 20060810
  Transmission Date: 20070707
  Serious: No
  Sender: FDA-Public Use
  Company Number: US200607005223

PATIENT
  Age: 48 Year
  Sex: Female

DRUGS (2)
  1. CYMBALTA [Suspect]
     Indication: OBSESSIVE-COMPULSIVE DISORDER
     Dosage: SEE IMAGE
     Dates: start: 20060701, end: 20060731
  2. CYMBALTA [Suspect]
     Indication: OBSESSIVE-COMPULSIVE DISORDER
     Dosage: SEE IMAGE
     Dates: start: 20060801

REACTIONS (12)
  - ABNORMAL DREAMS [None]
  - APATHY [None]
  - EMOTIONAL DISORDER [None]
  - FATIGUE [None]
  - FEELING OF RELAXATION [None]
  - FOOD CRAVING [None]
  - IMPULSE-CONTROL DISORDER [None]
  - MEMORY IMPAIRMENT [None]
  - SLEEP DISORDER [None]
  - SLUGGISHNESS [None]
  - THINKING ABNORMAL [None]
  - WEIGHT INCREASED [None]
